FAERS Safety Report 8032373-5 (Version None)
Quarter: 2012Q1

REPORT INFORMATION
  Report Type: 
  Country: None (occurrence: None)
  Receive Date: 20120109
  Receipt Date: 20120109
  Transmission Date: 20120608
  Serious: Yes (Hospitalization)
  Sender: FDA-Public Use
  Company Number: None

PATIENT
  Sex: Male
  Weight: 131 kg

DRUGS (1)
  1. INTRON A [Suspect]
     Dosage: 780 MILLION IU
     Dates: end: 20120105

REACTIONS (2)
  - FEBRILE NEUTROPENIA [None]
  - CELLULITIS [None]
